FAERS Safety Report 9241654 (Version 1)
Quarter: 2013Q2

REPORT INFORMATION
  Report Type: Spontaneous
  Country: BR (occurrence: BR)
  Receive Date: 20130419
  Receipt Date: 20130419
  Transmission Date: 20140414
  Serious: Yes (Hospitalization, Other)
  Sender: FDA-Public Use
  Company Number: BR-ELI_LILLY_AND_COMPANY-BR201304003485

PATIENT
  Age: 66 Year
  Sex: Female
  Weight: 66 kg

DRUGS (9)
  1. EVISTA [Suspect]
     Indication: OSTEOPOROSIS
     Dosage: 60 MG, QD
     Route: 048
     Dates: start: 2011, end: 201301
  2. OMEPRAZOL [Concomitant]
     Indication: GASTRIC DISORDER
     Dosage: 20 MG, BID
     Route: 065
  3. OMEPRAZOL [Concomitant]
     Dosage: 20 MG, QD
     Route: 065
  4. DICLOFENACO DIETILAMONIO [Concomitant]
     Indication: PAIN IN EXTREMITY
     Dosage: UNK DF, UNK
     Route: 061
  5. ATENOLOL [Concomitant]
     Indication: CARDIAC DISORDER
     Dosage: 25 MG, QD
     Route: 065
  6. HYDROCHLOROTHIAZIDE [Concomitant]
     Indication: DIURETIC THERAPY
     Dosage: 25 MG, UNK
     Route: 065
  7. AMLODIPINE BESILATE [Concomitant]
     Indication: HYPERTENSION
     Dosage: 5 MG, UNK
     Route: 065
  8. LOSARTAN POTASSIUM [Concomitant]
     Indication: HYPERTENSION
     Dosage: 50 MG, QD
     Route: 065
  9. LOSARTAN POTASSIUM [Concomitant]
     Dosage: 50 MG, BID
     Route: 065
     Dates: start: 20130326

REACTIONS (5)
  - Convulsion [Unknown]
  - Cerebrovascular accident [Unknown]
  - Insomnia [Unknown]
  - Blood pressure increased [Unknown]
  - Pain in extremity [Unknown]
